FAERS Safety Report 15279498 (Version 1)
Quarter: 2018Q3

REPORT INFORMATION
  Report Type: Spontaneous
  Country: US (occurrence: US)
  Receive Date: 20180815
  Receipt Date: 20180815
  Transmission Date: 20181010
  Serious: No
  Sender: FDA-Public Use
  Company Number: US-PFIZER INC-2018325439

PATIENT
  Age: 61 Year
  Sex: Female

DRUGS (7)
  1. SULFAMETHOXAZOLE [Suspect]
     Active Substance: SULFAMETHOXAZOLE
     Dosage: UNK
  2. TRIMETHOPRIM. [Suspect]
     Active Substance: TRIMETHOPRIM
     Dosage: UNK
  3. AMOXICILLIN. [Suspect]
     Active Substance: AMOXICILLIN
     Dosage: UNK
  4. CIPROFLOXACIN. [Suspect]
     Active Substance: CIPROFLOXACIN
     Dosage: UNK
  5. CLAVULANATE POTASSIUM [Suspect]
     Active Substance: CLAVULANATE POTASSIUM
     Dosage: UNK
  6. NICKEL [Suspect]
     Active Substance: NICKEL
     Dosage: UNK
  7. COPPER [Suspect]
     Active Substance: COPPER
     Dosage: UNK

REACTIONS (1)
  - Drug hypersensitivity [Unknown]
